FAERS Safety Report 8024330-X (Version None)
Quarter: 2011Q4

REPORT INFORMATION
  Report Type: 
  Country: None (occurrence: None)
  Receive Date: 20111130
  Receipt Date: 20110824
  Transmission Date: 20120403
  Serious: Yes (Other)
  Sender: FDA-Public Use
  Company Number: 334102

PATIENT
  Sex: Female

DRUGS (6)
  1. NOVOLOG [Suspect]
     Indication: TYPE 2 DIABETES MELLITUS
     Dosage: UNKNOWN
  2. LEVEMIR [Suspect]
     Indication: TYPE 2 DIABETES MELLITUS
     Dosage: UNKNOWN, SUBCUTANEOUS
     Route: 058
  3. SYNTHROID [Concomitant]
  4. CYMBALTA [Suspect]
     Indication: ARTHRALGIA
     Dosage: UNK
     Dates: start: 20110801
  5. TOPROL-XL [Concomitant]
  6. NITROGLYCERIN [Concomitant]

REACTIONS (1)
  - HYPOGLYCAEMIA [None]
